FAERS Safety Report 4952678-1 (Version None)
Quarter: 2006Q1

REPORT INFORMATION
  Report Type: 
  Country: None (occurrence: None)
  Receive Date: 20060324
  Receipt Date: 20060313
  Transmission Date: 20060701
  Serious: Yes (Hospitalization)
  Sender: FDA-Public Use
  Company Number: BR-ABBOTT-06P-020-0327851-00

PATIENT
  Age: 12 Year
  Sex: Male
  Weight: 65 kg

DRUGS (1)
  1. DEPAKENE [Suspect]
     Indication: CONVULSION
     Route: 048
     Dates: start: 20060201

REACTIONS (2)
  - DENGUE FEVER [None]
  - VIRAL INFECTION [None]
